FAERS Safety Report 9451430 (Version 1)
Quarter: 2013Q3

REPORT INFORMATION
  Report Type: Spontaneous
  Country: JP (occurrence: JP)
  Receive Date: 20130809
  Receipt Date: 20130809
  Transmission Date: 20140515
  Serious: Yes (Other)
  Sender: FDA-Public Use
  Company Number: JP-RB-055986-13

PATIENT
  Sex: Male

DRUGS (4)
  1. LEPETAN SUPPOSITORY [Suspect]
     Indication: PAIN
     Route: 054
     Dates: start: 1994
  2. ZOPICLONE [Concomitant]
     Indication: PRODUCT USED FOR UNKNOWN INDICATION
     Dosage: DOSING OF 7.5 MG EVERY EVENING
     Route: 065
     Dates: end: 201101
  3. ZOPICLONE [Concomitant]
     Dosage: DOSING DETAILS UNKNOWN
     Route: 065
  4. ZOPICLONE [Concomitant]
     Dosage: DOSING DETAILS UNKNOWN
     Route: 065
     Dates: start: 201305

REACTIONS (5)
  - Drug dependence [Unknown]
  - Feeling abnormal [Unknown]
  - Restlessness [Unknown]
  - Drug withdrawal syndrome [Unknown]
  - Pseudologia [Unknown]
